FAERS Safety Report 4345304-6 (Version None)
Quarter: 2004Q2

REPORT INFORMATION
  Report Type: 
  Country: None (occurrence: None)
  Receive Date: 20040423
  Receipt Date: 20040204
  Transmission Date: 20050107
  Serious: Yes (Hospitalization)
  Sender: FDA-Public Use
  Company Number: JP-GLAXOSMITHKLINE-B0322364A

PATIENT
  Age: 73 Year
  Sex: Male
  Weight: 49 kg

DRUGS (11)
  1. PAXIL [Suspect]
     Indication: DEPRESSION
     Dosage: 10MG PER DAY
     Route: 048
     Dates: start: 20031225, end: 20040101
  2. ALLOPURINOL [Concomitant]
     Dosage: 100MG PER DAY
     Route: 048
     Dates: end: 20030103
  3. ALFACALCIDOL [Concomitant]
     Dosage: .25MCG PER DAY
     Route: 048
     Dates: end: 20030105
  4. METOCLOPRAMIDE [Concomitant]
     Indication: GASTROINTESTINAL DISORDER
     Dosage: 3U PER DAY
     Route: 048
     Dates: end: 20030105
  5. FAMOTIDINE [Concomitant]
     Indication: GASTROINTESTINAL DISORDER
     Dosage: 1U PER DAY
     Route: 048
     Dates: start: 20030102, end: 20040102
  6. BROTIZOLAM [Concomitant]
     Indication: INSOMNIA
     Dosage: 1U PER DAY
     Route: 048
     Dates: end: 20030105
  7. TEPRENONE [Concomitant]
     Indication: GASTROINTESTINAL DISORDER
     Dosage: 3U PER DAY
     Route: 048
     Dates: end: 20030105
  8. TIAPRIDE HYDROCHLORIDE [Concomitant]
     Indication: INSOMNIA
     Dosage: 25MG PER DAY
     Route: 048
     Dates: end: 20030106
  9. DIALYSIS [Concomitant]
  10. RED BLOOD CELL TRANSFUSION [Concomitant]
  11. GASTROINTESTINAL DRUG [Concomitant]
     Indication: GASTROINTESTINAL DISORDER
     Dosage: 3G PER DAY
     Route: 048
     Dates: end: 20040102

REACTIONS (7)
  - ALANINE AMINOTRANSFERASE INCREASED [None]
  - ASPARTATE AMINOTRANSFERASE INCREASED [None]
  - BLOOD LACTATE DEHYDROGENASE INCREASED [None]
  - CONDITION AGGRAVATED [None]
  - DISSEMINATED INTRAVASCULAR COAGULATION [None]
  - GAMMA-GLUTAMYLTRANSFERASE INCREASED [None]
  - LIVER DISORDER [None]
